FAERS Safety Report 8450811-0 (Version None)
Quarter: 2012Q2

REPORT INFORMATION
  Report Type: 
  Country: None (occurrence: None)
  Receive Date: 20120615
  Receipt Date: 20120615
  Transmission Date: 20120825
  Serious: No
  Sender: FDA-Public Use
  Company Number: None

PATIENT
  Age: 54 Year
  Sex: Male
  Weight: 90.7194 kg

DRUGS (1)
  1. OXYMETAZOLINE HCL [Suspect]
     Indication: NASAL CONGESTION
     Dosage: ADULTS 2-3 SPRAYS IN EACH NOSTRIL
     Route: 045
     Dates: start: 20120528

REACTIONS (3)
  - BURNING SENSATION [None]
  - LACRIMATION INCREASED [None]
  - RHINORRHOEA [None]
